FAERS Safety Report 15141793 (Version 2)
Quarter: 2018Q3

REPORT INFORMATION
  Report Type: Spontaneous
  Country: US (occurrence: US)
  Receive Date: 20180713
  Receipt Date: 20180713
  Transmission Date: 20181010
  Serious: No
  Sender: FDA-Public Use
  Company Number: US-ASTELLAS-2017US035395

PATIENT
  Age: 83 Year
  Sex: Female

DRUGS (5)
  1. MYRBETRIQ [Suspect]
     Active Substance: MIRABEGRON
     Indication: URINARY INCONTINENCE
  2. MIRALAX [Concomitant]
     Active Substance: POLYETHYLENE GLYCOL 3350
     Indication: PRODUCT USED FOR UNKNOWN INDICATION
     Dosage: UNK UNK, UNKNOWN FREQ.
     Route: 065
  3. MYRBETRIQ [Suspect]
     Active Substance: MIRABEGRON
     Indication: NOCTURIA
     Route: 065
     Dates: start: 20160908
  4. MYRBETRIQ [Suspect]
     Active Substance: MIRABEGRON
     Indication: NOCTURIA
     Route: 065
  5. MYRBETRIQ [Suspect]
     Active Substance: MIRABEGRON
     Indication: URINARY INCONTINENCE

REACTIONS (1)
  - Dry mouth [Not Recovered/Not Resolved]

NARRATIVE: CASE EVENT DATE: 20170808
